FAERS Safety Report 21436652 (Version 1)
Quarter: 2022Q4

REPORT INFORMATION
  Report Type: Report from Study
  Country: US (occurrence: US)
  Receive Date: 20221010
  Receipt Date: 20221010
  Transmission Date: 20230113
  Serious: Yes (Hospitalization)
  Sender: FDA-Public Use
  Company Number: US-SEATTLE GENETICS-2022SGN07970

PATIENT
  Age: 71 Year
  Sex: Female

DRUGS (1)
  1. TUCATINIB [Suspect]
     Active Substance: TUCATINIB
     Indication: Breast cancer female
     Dosage: UNK
     Route: 065

REACTIONS (4)
  - Localised infection [Unknown]
  - Skin irritation [Unknown]
  - Blister [Unknown]
  - Stomatitis [Unknown]

NARRATIVE: CASE EVENT DATE: 20220801
